FAERS Safety Report 19212235 (Version 2)
Quarter: 2024Q4

REPORT INFORMATION
  Report Type: Report from Study
  Country: US (occurrence: US)
  Receive Date: 20210504
  Receipt Date: 20241029
  Transmission Date: 20250115
  Serious: Yes (Disabling, Other)
  Sender: NOVO NORDISK
  Company Number: US-NOVOPROD-807996

PATIENT
  Age: 60 Year
  Sex: Female

DRUGS (2)
  1. LEVEMIR [Suspect]
     Active Substance: INSULIN DETEMIR
     Indication: Diabetes mellitus
     Dosage: UNK
     Route: 058
  2. NOVOLOG [Suspect]
     Active Substance: INSULIN ASPART
     Indication: Diabetes mellitus
     Dosage: UNK
     Route: 058

REACTIONS (3)
  - Neuropathy peripheral [Unknown]
  - Disability [Unknown]
  - Visual impairment [Unknown]

NARRATIVE: CASE EVENT DATE: 20201201
